FAERS Safety Report 17575233 (Version 2)
Quarter: 2020Q4

REPORT INFORMATION
  Report Type: Spontaneous
  Country: US (occurrence: US)
  Receive Date: 20200324
  Receipt Date: 20201009
  Transmission Date: 20210113
  Serious: Yes (Other)
  Sender: FDA-Public Use
  Company Number: US-LUPIN PHARMACEUTICALS INC.-2020-01469

PATIENT
  Age: 67 Year
  Sex: Male

DRUGS (19)
  1. MEMANTINE. [Suspect]
     Active Substance: MEMANTINE
     Dosage: 10 MILLIGRAM, BID (GRADUALLY INCREASED)
     Route: 065
  2. GABAPENTIN. [Suspect]
     Active Substance: GABAPENTIN
     Indication: ANXIETY
     Dosage: 600 MILLIGRAM, TID
     Route: 065
     Dates: start: 20170328
  3. GABAPENTIN. [Suspect]
     Active Substance: GABAPENTIN
     Dosage: 600 MILLIGRAM, QD (DECREASED)
     Route: 065
  4. MEMANTINE. [Suspect]
     Active Substance: MEMANTINE
     Indication: SEXUALLY INAPPROPRIATE BEHAVIOUR
     Dosage: 5 MILLIGRAM, QD
     Route: 065
  5. MEMANTINE. [Suspect]
     Active Substance: MEMANTINE
     Dosage: 25 MILLIGRAM, QD (INCREASED TO 10 MG IN AM AND 15 MG AT PM)
     Route: 065
  6. MEMANTINE. [Suspect]
     Active Substance: MEMANTINE
     Dosage: UNK, DOSE INCREASED
     Route: 065
  7. MEMANTINE. [Suspect]
     Active Substance: MEMANTINE
     Dosage: 30 MILLIGRAM, QD (10 MG IN AM AND 20 MG IN THE EVENING)
     Route: 065
  8. GABAPENTIN. [Suspect]
     Active Substance: GABAPENTIN
     Indication: AGITATION
     Dosage: 300 MILLIGRAM, TID
     Route: 065
  9. RISPERIDONE. [Concomitant]
     Active Substance: RISPERIDONE
     Dosage: 0.5 MILLIGRAM, BID
     Route: 065
     Dates: start: 20170325
  10. RISPERIDONE. [Concomitant]
     Active Substance: RISPERIDONE
     Dosage: UNK (HIGHER DOSE)
     Route: 065
  11. LEUPROLIDE [LEUPRORELIN] [Concomitant]
     Active Substance: LEUPROLIDE ACETATE
     Indication: PRODUCT USED FOR UNKNOWN INDICATION
     Dosage: UNK
     Route: 065
  12. GABAPENTIN. [Suspect]
     Active Substance: GABAPENTIN
     Dosage: 1200 MILLIGRAM, QD (300 MG BID AND 600 MG AT PM)
     Route: 065
  13. PAROXETINE. [Concomitant]
     Active Substance: PAROXETINE
     Indication: AGITATION
     Dosage: 50 MILLIGRAM, UNK
     Route: 065
  14. CITALOPRAM [Concomitant]
     Active Substance: CITALOPRAM HYDROBROMIDE
     Indication: AGITATION
     Dosage: 40 MILLIGRAM, UNK
     Route: 065
  15. MEMANTINE. [Suspect]
     Active Substance: MEMANTINE
     Dosage: 10 MILLIGRAM, BID (DECREASED)
     Route: 065
  16. PAROXETINE. [Concomitant]
     Active Substance: PAROXETINE
     Indication: ANXIETY
  17. RISPERIDONE. [Concomitant]
     Active Substance: RISPERIDONE
     Indication: SEXUALLY INAPPROPRIATE BEHAVIOUR
     Dosage: 0.25 MILLIGRAM, BID
     Route: 065
  18. GABAPENTIN. [Suspect]
     Active Substance: GABAPENTIN
     Dosage: 300 MILLIGRAM, QD (DECREASED)
     Route: 065
  19. CITALOPRAM [Concomitant]
     Active Substance: CITALOPRAM HYDROBROMIDE
     Indication: ANXIETY
     Dosage: 40 MILLIGRAM, QD
     Route: 065

REACTIONS (8)
  - Gait disturbance [Unknown]
  - Therapeutic response unexpected [Unknown]
  - Fall [Unknown]
  - Extra dose administered [Unknown]
  - Memory impairment [Unknown]
  - Lethargy [Unknown]
  - Confusional state [Unknown]
  - Dysarthria [Unknown]

NARRATIVE: CASE EVENT DATE: 20170730
